FAERS Safety Report 10151539 (Version 1)
Quarter: 2014Q2

REPORT INFORMATION
  Report Type: Report from Study
  Country: CA (occurrence: CA)
  Receive Date: 20140504
  Receipt Date: 20140504
  Transmission Date: 20141212
  Serious: Yes (Other)
  Sender: FDA-Public Use
  Company Number: CA-BRISTOL-MYERS SQUIBB COMPANY-20688206

PATIENT
  Age: 31 Year
  Sex: Female

DRUGS (3)
  1. ORENCIA [Suspect]
     Indication: RHEUMATOID ARTHRITIS
     Dosage: 1DF:750 UNITS NOS
     Dates: start: 20120928
  2. DICLOFENAC [Concomitant]
  3. TYLENOL [Concomitant]

REACTIONS (2)
  - Road traffic accident [Unknown]
  - Lung disorder [Unknown]
